FAERS Safety Report 18855920 (Version 3)
Quarter: 2021Q1

REPORT INFORMATION
  Report Type: Spontaneous
  Country: JP (occurrence: JP)
  Receive Date: 20210206
  Receipt Date: 20210304
  Transmission Date: 20210420
  Serious: Yes (Other)
  Sender: FDA-Public Use
  Company Number: JP-ACCORD-216896

PATIENT
  Age: 69 Year
  Sex: Male
  Weight: 52.5 kg

DRUGS (3)
  1. FLUOROURACIL. [Suspect]
     Active Substance: FLUOROURACIL
     Indication: OESOPHAGEAL CARCINOMA
     Dosage: ON DAYS 1 TO 5 , WAS PERFORMED FOR 21 DAYS
  2. CISPLATIN. [Suspect]
     Active Substance: CISPLATIN
     Indication: OESOPHAGEAL CARCINOMA
     Dosage: ON DAYS 1, WAS PERFORMED FOR 21 DAYS
  3. DOCETAXEL. [Suspect]
     Active Substance: DOCETAXEL
     Indication: OESOPHAGEAL CARCINOMA
     Dosage: ON DAYS 1 TO 5 , WAS PERFORMED FOR 21 DAYS

REACTIONS (1)
  - Renal impairment [Recovering/Resolving]
